FAERS Safety Report 16443064 (Version 2)
Quarter: 2019Q2

REPORT INFORMATION
  Report Type: Spontaneous
  Country: US (occurrence: US)
  Receive Date: 20190617
  Receipt Date: 20190623
  Transmission Date: 20190711
  Serious: No
  Sender: FDA-Public Use
  Company Number: US-AMGEN-USASP2019094589

PATIENT
  Age: 52 Year
  Sex: Female
  Weight: 92.52 kg

DRUGS (12)
  1. SODIUM CHLORIDE. [Concomitant]
     Active Substance: SODIUM CHLORIDE
     Dosage: 500 MILLILITER
     Route: 042
  2. SODIUM CHLORIDE. [Concomitant]
     Active Substance: SODIUM CHLORIDE
     Dosage: 250 MILLILITER
     Route: 042
  3. DEXTROSE IN WATER [Concomitant]
     Active Substance: DEXTROSE\WATER
     Dosage: 50 MILLILITER
     Route: 042
  4. AVASTIN [Concomitant]
     Active Substance: BEVACIZUMAB
     Dosage: 1324 MILLIGRAM (IN 0.9% SODIUM CHLORIDE 100 ML)
     Route: 042
     Dates: start: 20190610, end: 20190610
  5. TAXOL [Concomitant]
     Active Substance: PACLITAXEL
     Dosage: 252 MILLIGRAM (IN 0.9% SODIUM CHLORIDE 500 ML)
     Route: 042
  6. NEULASTA [Suspect]
     Active Substance: PEGFILGRASTIM
     Indication: PRODUCT USED FOR UNKNOWN INDICATION
     Dosage: 6 MILLIGRAM, AFTER CHEMO
     Route: 058
  7. DEXAMETHASONE. [Concomitant]
     Active Substance: DEXAMETHASONE
     Dosage: 10 MILLIGRAM (IN 5% DEXTROSE IN 50 ML WATER)
     Route: 042
  8. BENADRYL [Concomitant]
     Active Substance: DIPHENHYDRAMINE HYDROCHLORIDE
     Dosage: 25 MILLIGRAM (IN 5% DEXTROSE IN 50 ML WATER)
     Route: 042
  9. SODIUM CHLORIDE. [Concomitant]
     Active Substance: SODIUM CHLORIDE
     Dosage: 100 MILLILITER
     Route: 042
  10. PARAPLATIN [Concomitant]
     Active Substance: CARBOPLATIN
     Dosage: 725 MILLIGRAM (IN 5% DEXTROSE IN 250 ML WATER)
     Route: 042
  11. ALOXI [Concomitant]
     Active Substance: PALONOSETRON HYDROCHLORIDE
     Dosage: 0.25 MILLIGRAM
     Route: 042
  12. PEPCID [Concomitant]
     Active Substance: FAMOTIDINE
     Dosage: 20 MILLIGRAM (IN 5% DEXTROSE IN 50 ML WATER)
     Route: 042

REACTIONS (3)
  - Device malfunction [Unknown]
  - Accidental exposure to product [Unknown]
  - Wrong technique in product usage process [Unknown]

NARRATIVE: CASE EVENT DATE: 20190610
